FAERS Safety Report 7634480-5 (Version None)
Quarter: 2011Q3

REPORT INFORMATION
  Report Type: 
  Country: None (occurrence: None)
  Receive Date: 20110725
  Receipt Date: 20110712
  Transmission Date: 20111222
  Serious: Yes (Hospitalization)
  Sender: FDA-Public Use
  Company Number: US-CELGENEUS-163-50794-10070364

PATIENT
  Sex: Female
  Weight: 86.3 kg

DRUGS (19)
  1. PHENERGAN HCL [Concomitant]
     Indication: NAUSEA
     Route: 048
     Dates: start: 20100518
  2. VIDAZA [Suspect]
     Dosage: 200 MILLIGRAM
     Route: 065
     Dates: start: 20100222
  3. NEXIUM [Concomitant]
     Indication: PROPHYLAXIS
     Dosage: 20 MILLIGRAM
     Route: 048
     Dates: start: 20100626
  4. LOVENOX [Concomitant]
     Indication: PROPHYLAXIS
     Dosage: 40 MILLIGRAM
     Route: 051
     Dates: start: 20100626
  5. PHENERGAN HCL [Concomitant]
     Dosage: 25 MILLIGRAM
     Route: 051
     Dates: start: 20100627
  6. KYTRIL [Concomitant]
     Dosage: 1 MILLIGRAM
     Route: 048
     Dates: start: 20100517, end: 20100623
  7. ABRAXANE [Suspect]
     Dosage: 197 MILLIGRAM
     Route: 065
     Dates: start: 20100301
  8. ABRAXANE [Suspect]
     Dosage: 197 MILLIGRAM
     Route: 065
     Dates: start: 20100607
  9. ZOFRAN [Concomitant]
     Indication: NAUSEA
     Dosage: 4 MILLIGRAM
     Route: 048
     Dates: start: 20100601, end: 20100625
  10. ZOFRAN [Concomitant]
     Indication: PREMEDICATION
     Dosage: 4 MILLIGRAM
     Route: 051
     Dates: start: 20100625
  11. SODIUM CHLORIDE [Concomitant]
     Indication: INTRAVENOUS CATHETER MANAGEMENT
     Route: 051
     Dates: start: 20100626
  12. TYLENOL-500 [Concomitant]
     Indication: HEADACHE
     Route: 048
  13. GRANISETRON [Concomitant]
     Dosage: 1 MILLIGRAM
     Route: 048
     Dates: start: 20100627
  14. MIRALAX [Concomitant]
     Indication: CONSTIPATION
     Dosage: 17 GRAM
     Route: 048
     Dates: start: 20100101, end: 20100625
  15. ABZENET [Concomitant]
     Indication: VOMITING
  16. COLACE [Concomitant]
     Indication: CONSTIPATION
     Dosage: 200 MILLIGRAM
     Route: 051
     Dates: start: 20100121
  17. TYLENOL PM [Concomitant]
     Indication: SLEEP DISORDER
     Route: 048
  18. ABZENET [Concomitant]
     Indication: NAUSEA
     Route: 048
     Dates: start: 20100518
  19. VIDAZA [Suspect]
     Dosage: 197 MILLIGRAM
     Route: 065
     Dates: start: 20100623

REACTIONS (2)
  - PNEUMOTHORAX [None]
  - PAIN [None]
